FAERS Safety Report 6422099-3 (Version None)
Quarter: 2009Q4

REPORT INFORMATION
  Report Type: 
  Country: None (occurrence: None)
  Receive Date: 20091030
  Receipt Date: 20091028
  Transmission Date: 20100525
  Serious: Yes (Death)
  Sender: FDA-Public Use
  Company Number: DE-JNJFOC-20090907002

PATIENT
  Sex: Male
  Weight: 98 kg

DRUGS (14)
  1. DURAGESIC-100 [Suspect]
     Indication: BACK PAIN
     Route: 062
  2. NORVASC [Concomitant]
     Dosage: 1-0-0
     Route: 065
  3. RAMIPRIL [Concomitant]
     Dosage: 1-0-0
     Route: 065
  4. BELOC ZOK [Concomitant]
     Dosage: 0.5-0-0
     Route: 065
  5. METOCLOPRAMIDE [Concomitant]
     Dosage: 1-0-1
     Route: 048
  6. SIOFOR [Concomitant]
     Dosage: 0.5-0-1
     Route: 065
  7. ZOPICLODURA [Concomitant]
     Dosage: 0-0-0-0.5
     Route: 065
  8. ZYLORIC [Concomitant]
     Dosage: 0-0-0-1
     Route: 065
  9. ATORVASTATIN [Concomitant]
     Dosage: 0-0-1
     Route: 065
  10. TRANCOLON [Concomitant]
     Dosage: 0-0-1
     Route: 065
  11. NOVALGIN [Concomitant]
     Route: 065
  12. RENNIE [Concomitant]
     Route: 065
  13. UNKNOWN MEDICATION [Concomitant]
     Indication: TINEA PEDIS
     Route: 048
  14. TRAMADOL HYDROCHLORIDE [Concomitant]
     Route: 065

REACTIONS (5)
  - CIRCULATORY COLLAPSE [None]
  - FATIGUE [None]
  - LOSS OF CONSCIOUSNESS [None]
  - SOMNOLENCE [None]
  - WRONG TECHNIQUE IN DRUG USAGE PROCESS [None]
